FAERS Safety Report 26095154 (Version 1)
Quarter: 2025Q4

REPORT INFORMATION
  Report Type: Spontaneous
  Country: CN (occurrence: CN)
  Receive Date: 20251127
  Receipt Date: 20251127
  Transmission Date: 20260118
  Serious: Yes (Hospitalization, Other)
  Sender: BAXTER
  Company Number: None

PATIENT
  Age: 69 Year
  Sex: Male
  Weight: 61 kg

DRUGS (9)
  1. IFOSFAMIDE [Suspect]
     Active Substance: IFOSFAMIDE
     Indication: Gastrointestinal lymphoma
     Dosage: 1.5 G, QD
     Route: 041
     Dates: start: 20251031, end: 20251103
  2. IFOSFAMIDE [Suspect]
     Active Substance: IFOSFAMIDE
     Indication: Diffuse large B-cell lymphoma
  3. SODIUM CHLORIDE [Suspect]
     Active Substance: SODIUM CHLORIDE
     Dosage: 500 ML, QD (IFOSFAMIDE + 0.9% SODIUM CHLORIDE)
     Route: 041
     Dates: start: 20251031, end: 20251103
  4. SODIUM CHLORIDE [Suspect]
     Active Substance: SODIUM CHLORIDE
     Dosage: 500 ML, QD (ETOPOSIDE + 0.9% SODIUM CHLORIDE)
     Route: 041
     Dates: start: 20251031, end: 20251102
  5. DEXTROSE [Suspect]
     Active Substance: DEXTROSE MONOHYDRATE
     Dosage: 500 ML, QD (CARBOPLATIN + 5% GLUCOSE)
     Route: 041
     Dates: start: 20251101, end: 20251101
  6. ETOPOSIDE [Suspect]
     Active Substance: ETOPOSIDE
     Indication: Gastrointestinal lymphoma
     Dosage: 0.15 G, QD
     Route: 041
     Dates: start: 20251031, end: 20251102
  7. ETOPOSIDE [Suspect]
     Active Substance: ETOPOSIDE
     Indication: Diffuse large B-cell lymphoma
  8. CARBOPLATIN [Suspect]
     Active Substance: CARBOPLATIN
     Indication: Gastrointestinal lymphoma
     Dosage: 0.35 G, QD
     Route: 041
     Dates: start: 20251101, end: 20251101
  9. CARBOPLATIN [Suspect]
     Active Substance: CARBOPLATIN
     Indication: Diffuse large B-cell lymphoma

REACTIONS (1)
  - Myelosuppression [Not Recovered/Not Resolved]

NARRATIVE: CASE EVENT DATE: 20251108
